FAERS Safety Report 4617290-2 (Version None)
Quarter: 2005Q1

REPORT INFORMATION
  Report Type: 
  Country: None (occurrence: None)
  Receive Date: 20050323
  Receipt Date: 20041206
  Transmission Date: 20050727
  Serious: Yes (Hospitalization, Disabling)
  Sender: FDA-Public Use
  Company Number: DE-MERCK-0412DEU00068

PATIENT
  Age: 81 Year
  Sex: Female
  Weight: 58 kg

DRUGS (3)
  1. VIOXX [Suspect]
     Indication: ARTHRALGIA
     Route: 048
     Dates: start: 20000818, end: 20030401
  2. FENDILINE HYDROCHLORIDE [Concomitant]
     Route: 065
     Dates: start: 19840101
  3. CALCIUM GLUCONATE AND CALCIUM PHOSPHATE TRIBASIC AND CHOLECALCIFEROL [Concomitant]
     Route: 065
     Dates: start: 19840101

REACTIONS (11)
  - BLINDNESS UNILATERAL [None]
  - ERYSIPELAS [None]
  - HEADACHE [None]
  - MACULAR DEGENERATION [None]
  - NECROTISING FASCIITIS [None]
  - PSEUDOMONAS INFECTION [None]
  - RETINAL TEAR [None]
  - RETINAL VASCULAR THROMBOSIS [None]
  - RETINAL VEIN OCCLUSION [None]
  - SKIN GRAFT [None]
  - THROMBOSIS [None]
